FAERS Safety Report 15532825 (Version 2)
Quarter: 2018Q4

REPORT INFORMATION
  Report Type: Report from Study
  Country: JP (occurrence: JP)
  Receive Date: 20181021
  Receipt Date: 20181026
  Transmission Date: 20190205
  Serious: Yes (Hospitalization, Other)
  Sender: FDA-Public Use
  Company Number: JP-AMGEN-JPNCT2018143641

PATIENT
  Age: 81 Year
  Sex: Male
  Weight: 54 kg

DRUGS (23)
  1. DARBEPOETIN ALFA [Suspect]
     Active Substance: DARBEPOETIN ALFA
     Dosage: 5 MUG, QWK
     Route: 051
     Dates: start: 20180723, end: 20180806
  2. MAINTATE [Suspect]
     Active Substance: BISOPROLOL FUMARATE
     Indication: CARDIAC FAILURE CHRONIC
     Dosage: 0.625 MG, QD
     Route: 048
  3. SODIUM RABEPRAZOLE [Concomitant]
     Active Substance: RABEPRAZOLE SODIUM
     Dosage: UNK
  4. VILDAGLIPTIN [Concomitant]
     Active Substance: VILDAGLIPTIN
     Dosage: UNK
  5. EPALRESTAT [Concomitant]
     Active Substance: EPALRESTAT
     Dosage: UNK
  6. ESZOPICLONE. [Concomitant]
     Active Substance: ESZOPICLONE
     Dosage: UNK
  7. CYANOCOBALAMIN. [Concomitant]
     Active Substance: CYANOCOBALAMIN
     Dosage: UNK
  8. KETOPROFEN. [Concomitant]
     Active Substance: KETOPROFEN
     Dosage: UNK
  9. DARBEPOETIN ALFA [Suspect]
     Active Substance: DARBEPOETIN ALFA
     Dosage: 10 MUG, QWK
     Route: 051
     Dates: start: 20180618, end: 20180716
  10. DARBEPOETIN ALFA [Suspect]
     Active Substance: DARBEPOETIN ALFA
     Dosage: 10 MUG, QWK
     Route: 051
     Dates: start: 20180813, end: 20180815
  11. PIRFENIDONE. [Concomitant]
     Active Substance: PIRFENIDONE
     Dosage: UNK
  12. HERBAL EXTRACT NOS [Concomitant]
     Active Substance: HERBALS
     Dosage: UNK
  13. DARBEPOETIN ALFA [Suspect]
     Active Substance: DARBEPOETIN ALFA
     Dosage: 10 MUG, QWK
     Route: 051
     Dates: start: 20180928
  14. RACOL NF [Concomitant]
     Dosage: UNK
  15. DARBEPOETIN ALFA [Suspect]
     Active Substance: DARBEPOETIN ALFA
     Dosage: 10 MUG, QWK
     Route: 051
     Dates: start: 20180924
  16. AMIODARONE HYDROCHLORIDE. [Concomitant]
     Active Substance: AMIODARONE HYDROCHLORIDE
     Dosage: UNK
  17. LEVOTHYROXINE SODIUM. [Concomitant]
     Active Substance: LEVOTHYROXINE SODIUM
     Dosage: UNK
  18. FERROUS SODIUM CITRATE [Concomitant]
     Active Substance: SODIUM FERROUS CITRATE
     Dosage: UNK
  19. WARFARIN [Concomitant]
     Active Substance: WARFARIN
     Dosage: UNK
     Dates: start: 20180817
  20. ATORVASTATIN CALCIUM. [Concomitant]
     Active Substance: ATORVASTATIN CALCIUM
     Dosage: UNK
  21. DARBEPOETIN ALFA [Suspect]
     Active Substance: DARBEPOETIN ALFA
     Indication: NEPHROGENIC ANAEMIA
     Dosage: 15 MUG, QWK
     Route: 051
     Dates: start: 20180611, end: 20180617
  22. DARBEPOETIN ALFA [Suspect]
     Active Substance: DARBEPOETIN ALFA
     Dosage: 10 MUG, QWK
     Route: 051
     Dates: start: 20180910, end: 20180915
  23. INSULIN GLULISINE [Concomitant]
     Active Substance: INSULIN GLULISINE
     Dosage: UNK

REACTIONS (2)
  - Retinal detachment [Not Recovered/Not Resolved]
  - Mycotic endophthalmitis [Recovering/Resolving]

NARRATIVE: CASE EVENT DATE: 20180809
